FAERS Safety Report 9507852 (Version 2)
Quarter: 2013Q3

REPORT INFORMATION
  Report Type: Report from Study
  Country: DE (occurrence: DE)
  Receive Date: 20130909
  Receipt Date: 20130912
  Transmission Date: 20140515
  Serious: Yes (Hospitalization, Other)
  Sender: FDA-Public Use
  Company Number: DE-ROCHE-1270421

PATIENT
  Age: 51 Year
  Sex: Male
  Weight: 114 kg

DRUGS (5)
  1. RITUXIMAB [Suspect]
     Indication: RHEUMATOID ARTHRITIS
     Dosage: 2 X 1000 MG WITHIN 14 DAYS?LAST DOSE PRIOR TO SAE: 06/MAY/2013
     Route: 042
     Dates: start: 20120802
  2. PREDNISOLONE [Concomitant]
     Indication: RHEUMATOID ARTHRITIS
     Route: 048
     Dates: start: 20080716
  3. METHOTREXATE [Concomitant]
     Indication: RHEUMATOID ARTHRITIS
     Route: 058
     Dates: start: 20060720
  4. RAMIPRIL [Concomitant]
     Indication: HYPERTENSION
     Route: 048
     Dates: start: 20101108
  5. BISOPROLOL [Concomitant]
     Indication: HYPERTENSION
     Route: 048
     Dates: start: 20081208

REACTIONS (2)
  - Vestibular neuronitis [Recovered/Resolved]
  - Sleep apnoea syndrome [Not Recovered/Not Resolved]
